FAERS Safety Report 15582725 (Version 2)
Quarter: 2019Q4

REPORT INFORMATION
  Report Type: Spontaneous
  Country: GR (occurrence: GR)
  Receive Date: 20181105
  Receipt Date: 20191117
  Transmission Date: 20200122
  Serious: Yes (Other)
  Sender: FDA-Public Use
  Company Number: GR-ROCHE-2210377

PATIENT
  Age: 71 Year
  Sex: Female

DRUGS (2)
  1. OBINUTUZUMAB. [Suspect]
     Active Substance: OBINUTUZUMAB
     Indication: CHRONIC LYMPHOCYTIC LEUKAEMIA
     Route: 065
     Dates: start: 20160628
  2. OBINUTUZUMAB. [Suspect]
     Active Substance: OBINUTUZUMAB
     Route: 065
     Dates: start: 20160705

REACTIONS (3)
  - Hepatotoxicity [Unknown]
  - Thrombocytopenia [Unknown]
  - Neutropenia [Unknown]
